FAERS Safety Report 4986992-0 (Version None)
Quarter: 2006Q2

REPORT INFORMATION
  Report Type: 
  Country: None (occurrence: None)
  Receive Date: 20060427
  Receipt Date: 20060427
  Transmission Date: 20061013
  Serious: Yes (Hospitalization)
  Sender: FDA-Public Use
  Company Number: None

PATIENT
  Age: 69 Year
  Sex: Male
  Weight: 77.1115 kg

DRUGS (1)
  1. UROXATRAL [Suspect]
     Indication: NOCTURIA
     Dosage: 10MG H.S.
     Route: 050
     Dates: start: 20060424, end: 20060424

REACTIONS (2)
  - HYPOTENSION [None]
  - SYNCOPE [None]
